FAERS Safety Report 5053954-7 (Version None)
Quarter: 2006Q3

REPORT INFORMATION
  Report Type: 
  Country: None (occurrence: None)
  Receive Date: 20060712
  Receipt Date: 20060703
  Transmission Date: 20061208
  Serious: Yes (Death, Hospitalization, Other)
  Sender: FDA-Public Use
  Company Number: BEWYE708909JUN06

PATIENT
  Sex: Male

DRUGS (7)
  1. SIROLIMUS [Suspect]
     Indication: PROPHYLAXIS AGAINST TRANSPLANT REJECTION
     Dosage: 15 MG 1X PER 1 DAY ORAL; SEE IMAGE
     Route: 048
     Dates: start: 20041019, end: 20041027
  2. SIROLIMUS [Suspect]
     Indication: PROPHYLAXIS AGAINST TRANSPLANT REJECTION
     Dosage: 15 MG 1X PER 1 DAY ORAL; SEE IMAGE
     Route: 048
     Dates: start: 20041029, end: 20041112
  3. SIROLIMUS [Suspect]
     Indication: PROPHYLAXIS AGAINST TRANSPLANT REJECTION
     Dosage: 15 MG 1X PER 1 DAY ORAL; SEE IMAGE
     Route: 048
     Dates: start: 20041018, end: 20041118
  4. SIROLIMUS [Suspect]
     Indication: PROPHYLAXIS AGAINST TRANSPLANT REJECTION
     Dosage: 15 MG 1X PER 1 DAY ORAL; SEE IMAGE
     Route: 048
     Dates: start: 20041113, end: 20041129
  5. TACROLIMUS (TACROLIMUS) [Concomitant]
  6. ZENAPAX [Concomitant]
  7. CORTICOSTEROIDS (CORTICOSTEROIDS) [Concomitant]

REACTIONS (2)
  - DISEASE RECURRENCE [None]
  - FOCAL GLOMERULOSCLEROSIS [None]
